FAERS Safety Report 19861811 (Version 1)
Quarter: 2021Q3

REPORT INFORMATION
  Report Type: Report from Study
  Country: None (occurrence: US)
  Receive Date: 20210921
  Receipt Date: 20210921
  Transmission Date: 20211014
  Serious: Yes (Other)
  Sender: FDA-Public Use
  Company Number: US-ABBVIE-21K-163-4074771-00

PATIENT
  Sex: Female
  Weight: 59.02 kg

DRUGS (2)
  1. COVID?19 VACCINE [Concomitant]
     Indication: COVID-19 IMMUNISATION
     Dosage: 1ST DOSE, JOHNSON AND JOHNSON
     Route: 030
     Dates: start: 20210501, end: 20210501
  2. HUMIRA [Suspect]
     Active Substance: ADALIMUMAB
     Indication: PRODUCT USED FOR UNKNOWN INDICATION
     Route: 058
     Dates: start: 2014

REACTIONS (2)
  - Anal fistula [Recovering/Resolving]
  - Anal abscess [Recovered/Resolved]

NARRATIVE: CASE EVENT DATE: 2015
